FAERS Safety Report 7782958-6 (Version None)
Quarter: 2011Q3

REPORT INFORMATION
  Report Type: 
  Country: None (occurrence: None)
  Receive Date: 20110926
  Receipt Date: 20110919
  Transmission Date: 20111222
  Serious: Yes (Hospitalization)
  Sender: FDA-Public Use
  Company Number: 1000023210

PATIENT
  Age: 50 Year
  Sex: Female

DRUGS (4)
  1. FEMARA (LETROZOLE)-(LETROZOLE) [Concomitant]
  2. VIIBRYD [Suspect]
     Indication: MAJOR DEPRESSION
     Dosage: SEE IMAGE
     Route: 048
     Dates: start: 20110804, end: 20110810
  3. VIIBRYD [Suspect]
     Indication: MAJOR DEPRESSION
     Dosage: SEE IMAGE
     Route: 048
     Dates: start: 20110811, end: 20110826
  4. VIIBRYD [Suspect]
     Indication: MAJOR DEPRESSION
     Dosage: SEE IMAGE
     Route: 048
     Dates: start: 20110728, end: 20110803

REACTIONS (1)
  - LIVER DISORDER [None]
